FAERS Safety Report 12707823 (Version 2)
Quarter: 2016Q3

REPORT INFORMATION
  Report Type: Report from Study
  Country: DE (occurrence: DE)
  Receive Date: 20160901
  Receipt Date: 20160909
  Transmission Date: 20161109
  Serious: Yes (Hospitalization, Other)
  Sender: FDA-Public Use
  Company Number: PHHY2016DE068496

PATIENT
  Sex: Male
  Weight: 115 kg

DRUGS (9)
  1. LANTUS [Concomitant]
     Active Substance: INSULIN GLARGINE
     Indication: DIABETES MELLITUS
     Dosage: 24 IE, UNK
     Route: 065
     Dates: start: 201011, end: 20160203
  2. LANTUS [Concomitant]
     Active Substance: INSULIN GLARGINE
     Indication: BLOOD GLUCOSE INCREASED
     Dosage: 30 IE, UNK
     Route: 065
     Dates: start: 20160204
  3. HYDROCORTISONE. [Concomitant]
     Active Substance: HYDROCORTISONE
     Indication: ADRENALECTOMY
     Dosage: 10 MG, UNK
     Route: 065
     Dates: start: 201110
  4. AFINITOR [Suspect]
     Active Substance: EVEROLIMUS
     Indication: METASTATIC RENAL CELL CARCINOMA
     Dosage: 10 MG, QD
     Route: 048
     Dates: start: 20150907, end: 20160326
  5. FLORINEF ACETATE [Concomitant]
     Active Substance: FLUDROCORTISONE ACETATE
     Indication: ADRENALECTOMY
     Dosage: 0.1 MG, UNK
     Route: 065
     Dates: start: 201110
  6. AFINITOR [Suspect]
     Active Substance: EVEROLIMUS
     Dosage: 10 MG, QD
     Route: 048
     Dates: start: 20160330, end: 20160404
  7. ENALAPRIL [Concomitant]
     Active Substance: ENALAPRIL
     Indication: HYPERTENSION
     Dosage: 25 MG, UNK
     Route: 065
     Dates: start: 200907
  8. APIDRA [Concomitant]
     Active Substance: INSULIN GLULISINE
     Indication: DIABETES MELLITUS
     Route: 065
     Dates: start: 201011
  9. AFINITOR [Suspect]
     Active Substance: EVEROLIMUS
     Dosage: 10 MG, QD
     Route: 048
     Dates: start: 20160411, end: 20160712

REACTIONS (12)
  - Swollen tongue [Recovered/Resolved]
  - Face oedema [Not Recovered/Not Resolved]
  - Oedema peripheral [Not Recovered/Not Resolved]
  - Anaphylactic shock [Unknown]
  - Cough [Not Recovered/Not Resolved]
  - Malignant neoplasm progression [Recovering/Resolving]
  - Allergic oedema [Recovered/Resolved]
  - Local swelling [Recovered/Resolved]
  - Blood glucose increased [Recovered/Resolved]
  - Anaphylactic reaction [Unknown]
  - Nasopharyngitis [Recovered/Resolved]
  - Dyspnoea [Not Recovered/Not Resolved]

NARRATIVE: CASE EVENT DATE: 20150916
